FAERS Safety Report 14382899 (Version 1)
Quarter: 2018Q1

REPORT INFORMATION
  Report Type: Report from Study
  Country: None (occurrence: US)
  Receive Date: 20180114
  Receipt Date: 20180114
  Transmission Date: 20180509
  Serious: Yes (Other)
  Sender: FDA-Public Use
  Company Number: US-ABBVIE-17K-163-2053299-00

PATIENT
  Age: 51 Year
  Sex: Male

DRUGS (1)
  1. HUMIRA [Suspect]
     Active Substance: ADALIMUMAB
     Indication: HIDRADENITIS
     Route: 058

REACTIONS (12)
  - Rash [Unknown]
  - Pain [Unknown]
  - Injection site pruritus [Recovered/Resolved]
  - Purulence [Unknown]
  - Injection site swelling [Recovered/Resolved]
  - Peripheral artery stenosis [Recovering/Resolving]
  - Weight increased [Unknown]
  - Injection site bruising [Not Recovered/Not Resolved]
  - Feeling hot [Recovered/Resolved]
  - Injection site papule [Recovered/Resolved]
  - Injection site pain [Recovered/Resolved]
  - Hypoaesthesia [Unknown]

NARRATIVE: CASE EVENT DATE: 2017
